FAERS Safety Report 12407765 (Version 1)
Quarter: 2016Q2

REPORT INFORMATION
  Report Type: Spontaneous
  Country: US (occurrence: US)
  Receive Date: 20160526
  Receipt Date: 20160526
  Transmission Date: 20160815
  Serious: No
  Sender: FDA-Public Use
  Company Number: US-MYLANLABS-2015M1028879

PATIENT
  Age: 70 Year
  Sex: Female
  Weight: 86.17 kg

DRUGS (1)
  1. ZOLPIDEM TARTRATE TABLETS, USP [Suspect]
     Active Substance: ZOLPIDEM TARTRATE
     Indication: SLEEP DISORDER
     Dosage: 5 MG, HS
     Dates: start: 20150820, end: 20150820

REACTIONS (1)
  - Drug ineffective [Not Recovered/Not Resolved]

NARRATIVE: CASE EVENT DATE: 20150820
